FAERS Safety Report 7550320-7 (Version None)
Quarter: 2011Q2

REPORT INFORMATION
  Report Type: 
  Country: None (occurrence: None)
  Receive Date: 20110615
  Receipt Date: 20110405
  Transmission Date: 20111010
  Serious: Yes (Other)
  Sender: FDA-Public Use
  Company Number: US-BAYER-2011-025499

PATIENT
  Age: 53 Year
  Sex: Male

DRUGS (3)
  1. SORAFENIB (RAF KINASE INHIBITOR) [Suspect]
     Indication: HEPATIC NEOPLASM MALIGNANT
     Dosage: 400 MG, BID
     Dates: start: 20110313
  2. SORAFENIB (RAF KINASE INHIBITOR) [Suspect]
     Dosage: 600 MG, QD 200 MG AM AND 400 MG PM
  3. SORAFENIB (RAF KINASE INHIBITOR) [Suspect]
     Dosage: 400 MG, BID
     Dates: start: 20110408

REACTIONS (3)
  - ERYTHEMA [None]
  - ABASIA [None]
  - PALMAR-PLANTAR ERYTHRODYSAESTHESIA SYNDROME [None]
